FAERS Safety Report 18608882 (Version 2)
Quarter: 2021Q3

REPORT INFORMATION
  Report Type: Other
  Country: MY (occurrence: MY)
  Receive Date: 20201213
  Receipt Date: 20210702
  Transmission Date: 20211014
  Serious: Yes (Death)
  Sender: FDA-Public Use
  Company Number: MY-ROCHE-2730040

PATIENT
  Age: 48 Year

DRUGS (1)
  1. TECENTRIQ [Suspect]
     Active Substance: ATEZOLIZUMAB
     Indication: NON-SMALL CELL LUNG CANCER
     Dosage: 60 MG/ML?4 CYCLES
     Route: 065

REACTIONS (2)
  - Metastases to central nervous system [Fatal]
  - Off label use [Unknown]
